FAERS Safety Report 17474765 (Version 1)
Quarter: 2020Q1

REPORT INFORMATION
  Report Type: Report from Study
  Country: CA (occurrence: CA)
  Receive Date: 20200228
  Receipt Date: 20200228
  Transmission Date: 20200409
  Serious: Yes (Other)
  Sender: FDA-Public Use
  Company Number: CA-JNJFOC-20190625124

PATIENT
  Age: 37 Year
  Sex: Male

DRUGS (3)
  1. STELARA [Suspect]
     Active Substance: USTEKINUMAB
     Indication: PSORIASIS
     Dosage: STRENGTH = 90 MG
     Route: 058
     Dates: start: 20170614
  2. STELARA [Suspect]
     Active Substance: USTEKINUMAB
     Route: 058
     Dates: start: 20170614
  3. DIAZEPAM NON-COMPANY [Concomitant]

REACTIONS (8)
  - Hepatic cirrhosis [Unknown]
  - Fall [Unknown]
  - Vision blurred [Unknown]
  - Bipolar disorder [Unknown]
  - Head injury [Unknown]
  - Seizure [Unknown]
  - Dizziness [Unknown]
  - Anxiety disorder [Unknown]

NARRATIVE: CASE EVENT DATE: 20190616
